FAERS Safety Report 17671405 (Version 1)
Quarter: 2020Q2

REPORT INFORMATION
  Report Type: Spontaneous
  Country: TW (occurrence: TW)
  Receive Date: 20200415
  Receipt Date: 20200415
  Transmission Date: 20200713
  Serious: Yes (Other)
  Sender: FDA-Public Use
  Company Number: TW-GLAXOSMITHKLINE-TW2020059928

PATIENT
  Sex: Male

DRUGS (2)
  1. NICOTINELL [Suspect]
     Active Substance: NICOTINE
     Indication: SMOKING CESSATION THERAPY
     Dosage: 12 GUMS PER DAY, 2 MG
  2. NICOTINELL [Suspect]
     Active Substance: NICOTINE
     Dosage: UNK 4 MG

REACTIONS (9)
  - Angina pectoris [Unknown]
  - Gastrointestinal pain [Unknown]
  - Heart rate increased [Unknown]
  - Abdominal pain lower [Unknown]
  - Musculoskeletal discomfort [Unknown]
  - Intentional product misuse [Unknown]
  - Bladder pain [Unknown]
  - Incorrect product administration duration [Unknown]
  - Drug ineffective [Unknown]
